FAERS Safety Report 22337490 (Version 1)
Quarter: 2023Q2

REPORT INFORMATION
  Report Type: Spontaneous
  Country: US (occurrence: None)
  Receive Date: 20230517
  Receipt Date: 20230517
  Transmission Date: 20230722
  Serious: Yes (Hospitalization)
  Sender: FDA-Public Use
  Company Number: None

PATIENT
  Age: 50 Year
  Sex: Female
  Weight: 45 kg

DRUGS (2)
  1. OXYCODONE [Suspect]
     Active Substance: OXYCODONE
     Indication: Intervertebral disc degeneration
     Dosage: 105 TABLETS  3.5 A DAY ORAL
     Route: 048
     Dates: start: 20230420, end: 20230511
  2. OXYCODONE [Suspect]
     Active Substance: OXYCODONE
     Indication: Intervertebral disc degeneration

REACTIONS (5)
  - Abdominal discomfort [None]
  - Anorectal discomfort [None]
  - Abdominal pain upper [None]
  - Vomiting [None]
  - Abdominal migraine [None]

NARRATIVE: CASE EVENT DATE: 20230511
